FAERS Safety Report 8276059-0 (Version None)
Quarter: 2012Q2

REPORT INFORMATION
  Report Type: 
  Country: None (occurrence: None)
  Receive Date: 20120405
  Receipt Date: 20120330
  Transmission Date: 20120825
  Serious: Yes (Hospitalization, Other)
  Sender: FDA-Public Use
  Company Number: 2010SP015904

PATIENT
  Age: 25 Year
  Sex: Female
  Weight: 45.3597 kg

DRUGS (8)
  1. TYLENOL (CAPLET) [Concomitant]
  2. IBUPROFEN (ADVIL) [Concomitant]
  3. ASPIRIN [Suspect]
     Indication: CEREBROVASCULAR ACCIDENT
  4. NAPROXEN [Concomitant]
  5. ENOXAPARIN [Suspect]
     Indication: THROMBOSIS
     Dates: start: 20070301
  6. CLOPIDOGREL [Suspect]
     Indication: THROMBOSIS
     Dates: start: 20070301
  7. NUVARING [Suspect]
     Indication: CONTRACEPTION
     Dates: start: 20050101, end: 20070301
  8. SUMATRIPTAN [Concomitant]

REACTIONS (22)
  - ANXIETY [None]
  - HAEMORRHAGIC ANAEMIA [None]
  - MENORRHAGIA [None]
  - VENTRICULAR TACHYCARDIA [None]
  - RETROPERITONEAL HAEMORRHAGE [None]
  - ABDOMINAL DISTENSION [None]
  - PYREXIA [None]
  - RETROPERITONEAL HAEMATOMA [None]
  - NAUSEA [None]
  - UTERINE HAEMORRHAGE [None]
  - PHYTOTHERAPY [None]
  - STRESS [None]
  - PHONOPHOBIA [None]
  - CEREBROVASCULAR ACCIDENT [None]
  - BREAST PROSTHESIS USER [None]
  - MIGRAINE [None]
  - HYPERTENSION [None]
  - URINARY TRACT INFECTION [None]
  - CERVICAL DYSPLASIA [None]
  - CONTUSION [None]
  - VAGINAL DISCHARGE [None]
  - VULVOVAGINAL PAIN [None]
